FAERS Safety Report 15280856 (Version 1)
Quarter: 2018Q3

REPORT INFORMATION
  Report Type: Spontaneous
  Country: US (occurrence: US)
  Receive Date: 20180731
  Receipt Date: 20180731
  Transmission Date: 20181010
  Serious: No
  Sender: FDA-Public Use
  Company Number: None

PATIENT
  Age: 39 Year
  Sex: Female

DRUGS (7)
  1. MULTIVITAMIN [Concomitant]
     Active Substance: VITAMINS
  2. KLONOPIN [Concomitant]
     Active Substance: CLONAZEPAM
  3. AMOXICILLIN?CLAVULANATE POTASSIUM [Suspect]
     Active Substance: AMOXICILLIN\CLAVULANATE POTASSIUM
     Indication: INFECTED BITE
     Dosage: ?          QUANTITY:20 TABLET(S);?
     Route: 048
     Dates: start: 20180725, end: 20180730
  4. MAGNESIUM [Concomitant]
     Active Substance: MAGNESIUM
  5. METFORMIN [Concomitant]
     Active Substance: METFORMIN HYDROCHLORIDE
  6. PROBIOTICS [Concomitant]
     Active Substance: PROBIOTICS NOS
  7. VITAMIN B [Concomitant]
     Active Substance: VITAMIN B

REACTIONS (5)
  - Anxiety [None]
  - Intentional product use issue [None]
  - Agitation [None]
  - Abdominal pain upper [None]
  - Major depression [None]

NARRATIVE: CASE EVENT DATE: 20180729
